FAERS Safety Report 17199058 (Version 1)
Quarter: 2019Q4

REPORT INFORMATION
  Report Type: Spontaneous
  Country: ES (occurrence: ES)
  Receive Date: 20191225
  Receipt Date: 20191225
  Transmission Date: 20200122
  Serious: Yes (Other)
  Sender: FDA-Public Use
  Company Number: ES-BAUSCH-BL-2019-065898

PATIENT
  Age: 72 Year
  Sex: Male

DRUGS (3)
  1. LORAZEPAM. [Suspect]
     Active Substance: LORAZEPAM
     Indication: INSOMNIA
     Dosage: 30 TABLETS
     Route: 048
     Dates: start: 20150204
  2. OXYCODONE [Interacting]
     Active Substance: OXYCODONE
     Indication: PRODUCT USED FOR UNKNOWN INDICATION
     Dosage: 28 MODIFIED-RELEASE TABLETS
     Route: 048
     Dates: start: 20180116
  3. PREGABALIN. [Interacting]
     Active Substance: PREGABALIN
     Indication: SPINAL OSTEOARTHRITIS
     Route: 048
     Dates: start: 20190115

REACTIONS (1)
  - Fall [Recovering/Resolving]

NARRATIVE: CASE EVENT DATE: 20191205
